FAERS Safety Report 9441755 (Version 1)
Quarter: 2013Q3

REPORT INFORMATION
  Report Type: Report from Study
  Country: ZA (occurrence: ZA)
  Receive Date: 20130806
  Receipt Date: 20130806
  Transmission Date: 20140515
  Serious: Yes (Death)
  Sender: FDA-Public Use
  Company Number: ZA-ROCHE-1257468

PATIENT
  Age: 76 Year
  Sex: Male

DRUGS (5)
  1. MIRCERA [Suspect]
     Indication: NEPHROGENIC ANAEMIA
     Route: 058
     Dates: start: 201201
  2. TAREG [Concomitant]
     Route: 065
  3. FERRIMED (FOLIC ACID/IRON POLYMALTOSE) [Concomitant]
     Dosage: 1 TABLET 3 TIMES PER DAY
     Route: 065
  4. COSMOFER [Concomitant]
     Route: 065
  5. ACTRAPHANE [Concomitant]

REACTIONS (1)
  - Death [Fatal]
